FAERS Safety Report 25527949 (Version 1)
Quarter: 2025Q3

REPORT INFORMATION
  Report Type: Spontaneous
  Country: CN (occurrence: CN)
  Receive Date: 20250708
  Receipt Date: 20250708
  Transmission Date: 20251021
  Serious: Yes (Other)
  Sender: Y-MABS THERAPEUTICS
  Company Number: CN-Y-MABS THERAPEUTICS, INC.-SPO2025-CN-002099

PATIENT

DRUGS (3)
  1. DANYELZA [Suspect]
     Active Substance: NAXITAMAB-GQGK
     Indication: Neuroblastoma
     Route: 042
     Dates: start: 20250618, end: 20250618
  2. FENTANYL CITRATE [Concomitant]
     Active Substance: FENTANYL CITRATE
  3. SODIUM CHLORIDE [Concomitant]
     Active Substance: SODIUM CHLORIDE

REACTIONS (3)
  - Blood pressure decreased [Recovered/Resolved]
  - Arrhythmia [Recovered/Resolved]
  - Abdominal pain [Recovered/Resolved]

NARRATIVE: CASE EVENT DATE: 20250618
